FAERS Safety Report 14750329 (Version 1)
Quarter: 2018Q2

REPORT INFORMATION
  Report Type: Spontaneous
  Country: DE (occurrence: DE)
  Receive Date: 20180412
  Receipt Date: 20180412
  Transmission Date: 20180711
  Serious: Yes (Hospitalization)
  Sender: FDA-Public Use
  Company Number: DE-BAUSCH-BL-2018-009492

PATIENT
  Age: 76 Year
  Sex: Female
  Weight: 56 kg

DRUGS (7)
  1. DEXAMETHASON [Suspect]
     Active Substance: DEXAMETHASONE
     Indication: PROPHYLAXIS
     Route: 065
     Dates: start: 201701
  2. ERBITUX [Suspect]
     Active Substance: CETUXIMAB
     Indication: COLORECTAL CANCER METASTATIC
     Route: 042
     Dates: start: 20170130, end: 20170130
  3. FOLINIC ACID [Concomitant]
     Active Substance: LEUCOVORIN
     Indication: COLORECTAL CANCER METASTATIC
     Dosage: DAILY DOSE: 330 MG MILLGRAM(S) EVERY WEEKS
     Route: 042
     Dates: start: 201701
  4. ERBITUX [Suspect]
     Active Substance: CETUXIMAB
     Dosage: DOSE TEXT:  1 (UNITS NOT SPECIFIED) PER WEEK
     Route: 042
     Dates: start: 201705
  5. 5 FU [Concomitant]
     Active Substance: FLUOROURACIL
     Indication: COLORECTAL CANCER METASTATIC
     Dosage: DAILY DOSE: 2640 MG MILLGRAM(S) EVERY WEEKS
     Route: 042
     Dates: start: 201701
  6. OXALIPLATIN. [Concomitant]
     Active Substance: OXALIPLATIN
     Indication: COLORECTAL CANCER METASTATIC
     Dosage: DAILY DOSE: 140 MG MILLGRAM(S) EVERY WEEKS
     Route: 042
     Dates: start: 201701
  7. ERBITUX [Suspect]
     Active Substance: CETUXIMAB
     Dosage: DAILY DOSE: 250 MG/M2 MILLIGRAM(S)/SQ. METER EVERY WEEKS
     Route: 042
     Dates: start: 20170213, end: 20170501

REACTIONS (3)
  - Hypokalaemia [Recovered/Resolved]
  - Inflammatory marker increased [Recovered/Resolved]
  - Blood glucose increased [Recovered/Resolved]

NARRATIVE: CASE EVENT DATE: 20170501
